FAERS Safety Report 8059903-1 (Version None)
Quarter: 2012Q1

REPORT INFORMATION
  Report Type: 
  Country: None (occurrence: None)
  Receive Date: 20120120
  Receipt Date: 20120116
  Transmission Date: 20120608
  Serious: Yes (Other)
  Sender: FDA-Public Use
  Company Number: BR-JNJFOC-20120107861

PATIENT
  Sex: Male
  Weight: 74 kg

DRUGS (2)
  1. LISTERINE TARTAR CONTROL [Suspect]
     Route: 048
     Dates: start: 20120115
  2. LISTERINE TARTAR CONTROL [Suspect]
     Indication: PRODUCT USED FOR UNKNOWN INDICATION
     Route: 048
     Dates: start: 20120111, end: 20120111

REACTIONS (5)
  - TONGUE DISCOLOURATION [None]
  - GINGIVAL ERYTHEMA [None]
  - ORAL DISCOMFORT [None]
  - APPLICATION SITE PAIN [None]
  - SWOLLEN TONGUE [None]
